FAERS Safety Report 20513436 (Version 2)
Quarter: 2022Q1

REPORT INFORMATION
  Report Type: Spontaneous
  Country: AU (occurrence: AU)
  Receive Date: 20220224
  Receipt Date: 20220324
  Transmission Date: 20220424
  Serious: No
  Sender: FDA-Public Use
  Company Number: AU-LUPIN PHARMACEUTICALS INC.-2022-02360

PATIENT
  Age: 35 Year
  Sex: Female

DRUGS (5)
  1. BETAMETHASONE [Suspect]
     Active Substance: BETAMETHASONE
     Indication: Maternal therapy to enhance foetal lung maturity
     Dosage: 11.4 MG (2 DOSES)
     Route: 030
  2. LIPIODOL [Suspect]
     Active Substance: ETHIODIZED OIL
     Indication: Splenic artery embolisation
     Dosage: UNK (0.5 CC OF GLUE MIXTURE (LIPIODOL AND HISTOACRYL BLUE) FLUSHED WITH 10CC OF 25% GLUCOSE)
     Route: 013
  3. HISTOACRYL [Suspect]
     Active Substance: ENBUCRILATE
     Indication: Splenic artery embolisation
     Dosage: UNK (0.5 CC OF GLUE MIXTURE (LIPIODOL AND HISTOACRYL BLUE) FLUSHED WITH 10 CC OF 25% GLUCOSE)
     Route: 013
  4. DEXTROSE [Suspect]
     Active Substance: DEXTROSE
     Indication: Product used for unknown indication
     Dosage: UNK (0.5 CC OF GLUE MIXTURE (LIPIODOL AND HISTOACRYL BLUE) FLUSHED WITH 10 CC OF 25% GLUCOSE)
     Route: 013
  5. SYNTOCINON [Suspect]
     Active Substance: OXYTOCIN
     Indication: Labour induction
     Dosage: UNK
     Route: 065

REACTIONS (1)
  - Exposure during pregnancy [Unknown]
